FAERS Safety Report 19648141 (Version 1)
Quarter: 2021Q3

REPORT INFORMATION
  Report Type: Spontaneous
  Country: CA (occurrence: CA)
  Receive Date: 20210802
  Receipt Date: 20210802
  Transmission Date: 20211014
  Serious: Yes (Other)
  Sender: FDA-Public Use
  Company Number: CA-AMGEN-CANSP2021115405

PATIENT
  Sex: Female

DRUGS (2)
  1. PROLIA [Suspect]
     Active Substance: DENOSUMAB
     Indication: OSTEOPOROSIS
     Dosage: 60 MILLIGRAM PER MILLILITER
     Route: 065
     Dates: start: 2018
  2. COVID?19 VACCINE [Concomitant]

REACTIONS (4)
  - Tooth disorder [Unknown]
  - Toothache [Unknown]
  - Infection [Unknown]
  - Myocarditis [Unknown]
